FAERS Safety Report 4282583-8 (Version None)
Quarter: 2004Q1

REPORT INFORMATION
  Report Type: 
  Country: None (occurrence: None)
  Receive Date: 20040130
  Receipt Date: 20020207
  Transmission Date: 20041129
  Serious: No
  Sender: FDA-Public Use
  Company Number: US-BRISTOL-MYERS SQUIBB COMPANY-11713112

PATIENT
  Age: 34 Year
  Sex: Male
  Weight: 98 kg

DRUGS (3)
  1. SERZONE [Suspect]
     Indication: MIGRAINE
     Dosage: 1 TABLET TWICE DAILY
     Route: 048
     Dates: start: 20010701
  2. ZOFRAN [Concomitant]
     Indication: MIGRAINE
     Dates: start: 20010901
  3. MORPHINE [Concomitant]
     Indication: MIGRAINE

REACTIONS (3)
  - ABDOMINAL PAIN [None]
  - ANOREXIA [None]
  - WEIGHT DECREASED [None]
